FAERS Safety Report 21017371 (Version 1)
Quarter: 2022Q2

REPORT INFORMATION
  Report Type: Spontaneous
  Country: US (occurrence: None)
  Receive Date: 20220627
  Receipt Date: 20220627
  Transmission Date: 20220721
  Serious: Yes (Hospitalization)
  Sender: FDA-Public Use
  Company Number: None

PATIENT
  Age: 73 Year
  Sex: Male
  Weight: 63 kg

DRUGS (1)
  1. ATORVASTATIN [Suspect]
     Active Substance: ATORVASTATIN
     Indication: Hyperlipidaemia
     Dosage: FREQUENCY : AT BEDTIME;?
     Route: 048
     Dates: start: 20130501, end: 20210605

REACTIONS (13)
  - Myalgia [None]
  - Nausea [None]
  - Vomiting [None]
  - Rhabdomyolysis [None]
  - Jaundice [None]
  - Blood urea increased [None]
  - Decreased appetite [None]
  - Weight decreased [None]
  - Fatigue [None]
  - Liver injury [None]
  - Acute kidney injury [None]
  - Asthenia [None]
  - Gastrointestinal disorder [None]

NARRATIVE: CASE EVENT DATE: 20210607
